FAERS Safety Report 15237854 (Version 1)
Quarter: 2018Q3

REPORT INFORMATION
  Report Type: Spontaneous
  Country: BE (occurrence: BE)
  Receive Date: 20180803
  Receipt Date: 20180803
  Transmission Date: 20181010
  Serious: Yes (Other)
  Sender: FDA-Public Use
  Company Number: BE-JNJFOC-20180729526

PATIENT
  Sex: Male
  Weight: 60 kg

DRUGS (1)
  1. STELARA [Suspect]
     Active Substance: USTEKINUMAB
     Indication: CROHN^S DISEASE
     Dosage: NDC# 414062
     Route: 058

REACTIONS (5)
  - Product use issue [Unknown]
  - Refractory cytopenia with unilineage dysplasia [Unknown]
  - Intestinal ulcer [Unknown]
  - Drug ineffective [Unknown]
  - Off label use [Unknown]
